FAERS Safety Report 25401468 (Version 1)
Quarter: 2025Q2

REPORT INFORMATION
  Report Type: Spontaneous
  Country: US (occurrence: None)
  Receive Date: 20250604
  Receipt Date: 20250604
  Transmission Date: 20250716
  Serious: Yes (Other)
  Sender: FDA-CTU
  Company Number: None

PATIENT
  Age: 72 Year
  Sex: Female
  Weight: 74.25 kg

DRUGS (1)
  1. WEGOVY [Suspect]
     Active Substance: SEMAGLUTIDE
     Indication: Diabetes mellitus
     Route: 050
     Dates: start: 20241006, end: 20250406

REACTIONS (13)
  - Retching [None]
  - Drug intolerance [None]
  - Nausea [None]
  - Vomiting [None]
  - Constipation [None]
  - Weight decreased [None]
  - Dizziness [None]
  - Dysphonia [None]
  - Rosacea [None]
  - Dry skin [None]
  - Skin exfoliation [None]
  - Dry mouth [None]
  - Fall [None]

NARRATIVE: CASE EVENT DATE: 20250401
